FAERS Safety Report 6372293-5 (Version None)
Quarter: 2009Q3

REPORT INFORMATION
  Report Type: 
  Country: None (occurrence: None)
  Receive Date: 20090924
  Receipt Date: 20070809
  Transmission Date: 20100115
  Serious: Yes (Other)
  Sender: FDA-Public Use
  Company Number: US-ASTRAZENECA-2007UW12230

PATIENT
  Age: 38 Year
  Sex: Male
  Weight: 83 kg

DRUGS (7)
  1. SEROQUEL [Suspect]
     Indication: SLEEP DISORDER
     Route: 048
     Dates: start: 20050705, end: 20050801
  2. TOPROL-XL [Concomitant]
     Dates: start: 20060721
  3. ZOLOFT [Concomitant]
     Dates: start: 20060721
  4. DIOVAN [Concomitant]
     Dates: start: 20060721
  5. CYMBALTA [Concomitant]
     Indication: ANXIETY
     Dosage: 30-60 MG
     Dates: start: 20060314
  6. CYMBALTA [Concomitant]
     Indication: DEPRESSION
     Dosage: 30-60 MG
     Dates: start: 20060314
  7. PREDNISONE TAB [Concomitant]
     Dates: start: 20050620

REACTIONS (3)
  - DIABETIC NEUROPATHY [None]
  - NEUROPATHY PERIPHERAL [None]
  - TYPE 2 DIABETES MELLITUS [None]
